FAERS Safety Report 8816801 (Version 1)
Quarter: 2012Q4

REPORT INFORMATION
  Report Type: Spontaneous
  Country: DE (occurrence: None)
  Receive Date: 20121001
  Receipt Date: 20121001
  Transmission Date: 20130627
  Serious: Yes (Other)
  Sender: FDA-Public Use
  Company Number: GER/GER/12/0025943

PATIENT
  Age: 3 Year
  Sex: Male
  Weight: 16 kg

DRUGS (6)
  1. SIMVABETA [Suspect]
     Indication: DRUG USE FOR UNKNOWN INDICATION
     Dosage: 1 dosage forms, oral
     Route: 048
     Dates: start: 20120918
  2. DOXEPIN [Suspect]
     Indication: DRUG USE FOR UNKNOWN INDICATION
     Dosage: 1 dosage forms, oral
     Route: 048
     Dates: start: 20120918
  3. TORASEMID [Suspect]
     Indication: DRUG USE FOR UNKNOWN INDICATION
     Dosage: 1 dosage forms, oral
     Route: 048
     Dates: start: 20120918
  4. BISOPROLOL [Suspect]
     Dosage: 1 dosage forms, oral
     Route: 048
     Dates: start: 20120918
  5. ALENDRONATE SODIUIM [Suspect]
     Indication: DRUG USE FOR UNKNOWN INDICATION
     Dosage: 1 dosage forms, oral
     Route: 048
     Dates: start: 20120919
  6. PANTOZOL [Suspect]
     Indication: DRUG USE FOR UNKNOWN INDICATION
     Dosage: 1 dosage forms, oral
     Route: 048
     Dates: start: 201809

REACTIONS (2)
  - Accidental exposure to product by child [None]
  - Somnolence [None]
